FAERS Safety Report 19438812 (Version 1)
Quarter: 2021Q2

REPORT INFORMATION
  Report Type: Spontaneous
  Country: FR (occurrence: FR)
  Receive Date: 20210618
  Receipt Date: 20210618
  Transmission Date: 20210717
  Serious: Yes (Life-Threatening)
  Sender: FDA-Public Use
  Company Number: FR-MYLANLABS-2021M1035534

PATIENT
  Age: 73 Year
  Sex: Female
  Weight: 48 kg

DRUGS (2)
  1. PACLITAXEL ACCORD [Suspect]
     Active Substance: PACLITAXEL
     Indication: OVARIAN CANCER
     Dosage: 270 MILLIGRAM, CYCLE
     Route: 041
     Dates: start: 20201112, end: 20201112
  2. CARBOPLATIN MYLAN [Suspect]
     Active Substance: CARBOPLATIN
     Indication: OVARIAN CANCER
     Dosage: 1 DOSAGE FORM, CYCLE
     Route: 041
     Dates: start: 20201112, end: 20201112

REACTIONS (3)
  - Dysphagia [Not Recovered/Not Resolved]
  - Stress cardiomyopathy [Recovered/Resolved]
  - Disorientation [Recovered/Resolved with Sequelae]

NARRATIVE: CASE EVENT DATE: 20201112
